FAERS Safety Report 13842094 (Version 1)
Quarter: 2017Q3

REPORT INFORMATION
  Report Type: Spontaneous
  Country: US (occurrence: US)
  Receive Date: 20170807
  Receipt Date: 20170807
  Transmission Date: 20171127
  Serious: No
  Sender: FDA-Public Use
  Company Number: None

PATIENT
  Age: 68 Year
  Sex: Female
  Weight: 102.06 kg

DRUGS (1)
  1. ARIPIPRAZOLE. [Suspect]
     Active Substance: ARIPIPRAZOLE
     Indication: DEPRESSION
     Route: 048
     Dates: start: 20170111, end: 20170413

REACTIONS (5)
  - Gambling [None]
  - Obsessive-compulsive disorder [None]
  - Restlessness [None]
  - Agitation [None]
  - Abnormal behaviour [None]

NARRATIVE: CASE EVENT DATE: 20170413
